FAERS Safety Report 12513907 (Version 1)
Quarter: 2016Q2

REPORT INFORMATION
  Report Type: Spontaneous
  Country: US (occurrence: None)
  Receive Date: 20160629
  Receipt Date: 20160629
  Transmission Date: 20160815
  Serious: Yes (Life-Threatening, Hospitalization)
  Sender: FDA-Public Use
  Company Number: None

PATIENT
  Age: 76 Year
  Sex: Female
  Weight: 69.7 kg

DRUGS (1)
  1. DOCUSATE LIQUID, 50 MG/5ML [Suspect]
     Active Substance: DOCUSATE
     Indication: GASTROINTESTINAL MOTILITY DISORDER
     Route: 048
     Dates: start: 20160618, end: 20160620

REACTIONS (2)
  - Lung infection [None]
  - Burkholderia test positive [None]

NARRATIVE: CASE EVENT DATE: 20160618
